FAERS Safety Report 12632347 (Version 2)
Quarter: 2016Q3

REPORT INFORMATION
  Report Type: Spontaneous
  Country: US (occurrence: US)
  Receive Date: 20160808
  Receipt Date: 20160808
  Transmission Date: 20161109
  Serious: No
  Sender: FDA-Public Use
  Company Number: US-BEH-2016062579

PATIENT
  Sex: Female
  Weight: 69 kg

DRUGS (14)
  1. CALCIUM+VITAMIN D [Concomitant]
     Active Substance: CALCIUM\VITAMIN D
  2. TYLENOL EXTRA STRENGTH [Concomitant]
     Active Substance: ACETAMINOPHEN
  3. LATANOPROST. [Concomitant]
     Active Substance: LATANOPROST
  4. GLUCOSAMINE [Concomitant]
     Active Substance: GLUCOSAMINE
  5. HIZENTRA [Suspect]
     Active Substance: HUMAN IMMUNOGLOBULIN G
     Indication: IMMUNODEFICIENCY COMMON VARIABLE
     Route: 058
  6. TRIAMTERENE-HCTZ [Concomitant]
     Active Substance: HYDROCHLOROTHIAZIDE\TRIAMTERENE
  7. MAGNESIUM [Concomitant]
     Active Substance: MAGNESIUM
  8. COMPLETE MULTIVITAMIN [Concomitant]
     Active Substance: VITAMINS
  9. ALLEGRA [Concomitant]
     Active Substance: FEXOFENADINE HYDROCHLORIDE
  10. PRILOSEC [Concomitant]
     Active Substance: OMEPRAZOLE MAGNESIUM
  11. OMEGA 3 FISH OIL [Concomitant]
     Active Substance: FISH OIL\OMEGA-3 FATTY ACIDS
  12. FEVERFEW [Concomitant]
     Active Substance: FEVERFEW
  13. LOSARTAN. [Concomitant]
     Active Substance: LOSARTAN
  14. FLONASE [Concomitant]
     Active Substance: FLUTICASONE PROPIONATE

REACTIONS (2)
  - Ear infection [Unknown]
  - Sinusitis [Unknown]
